FAERS Safety Report 8248823-5 (Version None)
Quarter: 2012Q2

REPORT INFORMATION
  Report Type: 
  Country: None (occurrence: None)
  Receive Date: 20120401
  Receipt Date: 20120323
  Transmission Date: 20120825
  Serious: Yes (Other)
  Sender: FDA-Public Use
  Company Number: PHHY2012BR026014

PATIENT
  Age: 74 Year
  Sex: Female

DRUGS (1)
  1. MIACALCIN [Suspect]
     Indication: OSTEOPOROSIS
     Dosage: 200 U, QD
     Route: 045
     Dates: start: 20090101

REACTIONS (3)
  - ATROPHY [None]
  - DYSSTASIA [None]
  - FEELING ABNORMAL [None]
